FAERS Safety Report 5086655-X (Version None)
Quarter: 2006Q3

REPORT INFORMATION
  Report Type: 
  Country: None (occurrence: None)
  Receive Date: 20060823
  Receipt Date: 20050809
  Transmission Date: 20061208
  Serious: No
  Sender: FDA-Public Use
  Company Number: US-GLAXOSMITHKLINE-A0569521A

PATIENT
  Age: 65 Year
  Sex: Female

DRUGS (5)
  1. MALARONE [Suspect]
     Indication: MALARIA PROPHYLAXIS
     Dosage: 1TAB IN THE MORNING
     Route: 048
     Dates: start: 20050610, end: 20050615
  2. LISINOPRIL [Concomitant]
  3. VITAMINS [Concomitant]
  4. CALCIUM GLUCONATE [Concomitant]
  5. HYDROCHLOROTHIAZIDE [Concomitant]

REACTIONS (2)
  - FATIGUE [None]
  - MUSCULAR WEAKNESS [None]
